FAERS Safety Report 9337280 (Version 2)
Quarter: 2013Q3

REPORT INFORMATION
  Report Type: Spontaneous
  Country: BR (occurrence: BR)
  Receive Date: 20130607
  Receipt Date: 20130708
  Transmission Date: 20140515
  Serious: Yes (Hospitalization)
  Sender: FDA-Public Use
  Company Number: BR-PFIZER INC-2013172207

PATIENT
  Age: 61 Year
  Sex: Male

DRUGS (3)
  1. LIPITOR [Suspect]
     Indication: BLOOD CHOLESTEROL ABNORMAL
     Dosage: 20 MG, CYCLIC (USED 2 MONTHS, STOPPED FOR 2 MONTHS), ONCE A DAY
  2. LIPITOR [Suspect]
     Dosage: 20 MG, 1X/DAY
     Dates: end: 2009
  3. LIPITOR [Suspect]
     Dosage: 20 MG, 2X/DAY
     Route: 048
     Dates: start: 2009, end: 2011

REACTIONS (2)
  - Venous occlusion [Recovering/Resolving]
  - Fatigue [Unknown]
